FAERS Safety Report 7365621-5 (Version None)
Quarter: 2011Q1

REPORT INFORMATION
  Report Type: 
  Country: None (occurrence: None)
  Receive Date: 20110316
  Receipt Date: 20110316
  Transmission Date: 20110831
  Serious: Yes (Other)
  Sender: FDA-Public Use
  Company Number: None

PATIENT
  Sex: Female
  Weight: 65.7716 kg

DRUGS (2)
  1. OXYCONTIN [Suspect]
     Indication: SPINAL FUSION SURGERY
     Dosage: 40MG 3 X DAY MOUTH
     Route: 048
     Dates: start: 20050101
  2. OXYCONTIN [Suspect]
     Indication: BACK PAIN
     Dosage: 40MG 3 X DAY MOUTH
     Route: 048
     Dates: start: 20050101

REACTIONS (8)
  - DRUG INEFFECTIVE [None]
  - CONSTIPATION [None]
  - ABDOMINAL DISCOMFORT [None]
  - PRODUCT FORMULATION ISSUE [None]
  - PRODUCT SOLUBILITY ABNORMAL [None]
  - VOMITING [None]
  - PRODUCT QUALITY ISSUE [None]
  - MEDICATION RESIDUE [None]
